FAERS Safety Report 14320224 (Version 8)
Quarter: 2022Q3

REPORT INFORMATION
  Report Type: Report from Study
  Country: US (occurrence: US)
  Receive Date: 20171222
  Receipt Date: 20220127
  Transmission Date: 20221026
  Serious: Yes (Death, Other)
  Sender: FDA-Public Use
  Company Number: US-INCYTE CORPORATION-2017IN011051

PATIENT

DRUGS (8)
  1. JAKAFI [Suspect]
     Active Substance: RUXOLITINIB
     Indication: Myelofibrosis
     Dosage: 5 MG, BID
     Route: 048
     Dates: start: 20170610
  2. BISOPROLOL W/HYDROCHLOROTHIAZIDE   /01166101/ [Concomitant]
     Indication: Product used for unknown indication
     Dosage: 1 DF, QD
     Route: 048
  3. CORDARONE [Concomitant]
     Active Substance: AMIODARONE HYDROCHLORIDE
     Indication: Product used for unknown indication
     Dosage: 0.5 MG, QOD
     Route: 048
  4. DIGOXIN [Concomitant]
     Active Substance: DIGOXIN
     Indication: Product used for unknown indication
     Dosage: 250 MCG, QD (ONLY ON: SAT, SUN, MON, TUES, THURS)
     Route: 048
  5. MULTIVITAMIN                       /07504101/ [Concomitant]
     Indication: Product used for unknown indication
     Dosage: 1 DF, QD
     Route: 048
  6. PROBIOTICS                         /07325001/ [Concomitant]
     Indication: Product used for unknown indication
     Dosage: 1 DF, QD
     Route: 048
  7. PROCHLORPERAZINE MALEATE [Concomitant]
     Active Substance: PROCHLORPERAZINE MALEATE
     Indication: Nausea
     Dosage: 10 MG, Q 4 HOURS, PRN
     Route: 048
  8. PROVENTIL HFA                      /00139501/ [Concomitant]
     Indication: Product used for unknown indication
     Dosage: 1 INHALATION AS DIRECTED

REACTIONS (4)
  - Asthenia [Fatal]
  - Decreased appetite [Fatal]
  - Weight decreased [Fatal]
  - Thrombocytopenia [Not Recovered/Not Resolved]

NARRATIVE: CASE EVENT DATE: 20170530
